FAERS Safety Report 6065490-X (Version None)
Quarter: 2009Q1

REPORT INFORMATION
  Report Type: 
  Country: None (occurrence: None)
  Receive Date: 20090130
  Receipt Date: 20090120
  Transmission Date: 20090719
  Serious: Yes (Other)
  Sender: FDA-Public Use
  Company Number: OSCN-GE-0901S-0012

PATIENT
  Age: 65 Year
  Sex: Male
  Weight: 60 kg

DRUGS (6)
  1. OMNISCAN [Suspect]
     Indication: DRUG USE FOR UNKNOWN INDICATION
     Dosage: 16 ML, SINGLE DOSE, I.V. ; 14 ML, SINGLE DOSE, I.V. ; 17 ML, SINGLE DOSE, I.V.
     Route: 042
     Dates: start: 20041101, end: 20041101
  2. OMNISCAN [Suspect]
     Indication: DRUG USE FOR UNKNOWN INDICATION
     Dosage: 16 ML, SINGLE DOSE, I.V. ; 14 ML, SINGLE DOSE, I.V. ; 17 ML, SINGLE DOSE, I.V.
     Route: 042
     Dates: start: 20041101, end: 20050801
  3. OMNISCAN [Suspect]
     Indication: DRUG USE FOR UNKNOWN INDICATION
     Dosage: 16 ML, SINGLE DOSE, I.V. ; 14 ML, SINGLE DOSE, I.V. ; 17 ML, SINGLE DOSE, I.V.
     Route: 042
     Dates: start: 20050801, end: 20050801
  4. ACETYLSALICYLIC ACID SRT [Concomitant]
  5. PROTON PUMP INHIBITOR [Concomitant]
  6. PHOSPHATE BINDER [Concomitant]

REACTIONS (1)
  - NEPHROGENIC SYSTEMIC FIBROSIS [None]
